FAERS Safety Report 17837006 (Version 8)
Quarter: 2020Q4

REPORT INFORMATION
  Report Type: Report from Study
  Country: US (occurrence: US)
  Receive Date: 20200528
  Receipt Date: 20201231
  Transmission Date: 20210113
  Serious: No
  Sender: FDA-Public Use
  Company Number: NVSC2020US147643

PATIENT
  Sex: Male

DRUGS (5)
  1. AMIODARONE [Concomitant]
     Active Substance: AMIODARONE
     Indication: PRODUCT USED FOR UNKNOWN INDICATION
     Dosage: UNK UNK, UNKNOWN
     Route: 065
  2. CARVEDILOL. [Concomitant]
     Active Substance: CARVEDILOL
     Indication: PRODUCT USED FOR UNKNOWN INDICATION
     Dosage: UNK UNK, UNKNOWN
     Route: 065
  3. ENTRESTO [Suspect]
     Active Substance: SACUBITRIL\VALSARTAN
     Indication: CARDIAC FAILURE
     Dosage: 50 MG (24/26 MG) BID
     Route: 048
  4. ENTRESTO [Suspect]
     Active Substance: SACUBITRIL\VALSARTAN
     Dosage: 200 MG (97/103 MG), BID
     Route: 048
  5. ENTRESTO [Suspect]
     Active Substance: SACUBITRIL\VALSARTAN
     Dosage: 97103 MG, BID
     Route: 048

REACTIONS (11)
  - Fluid retention [Unknown]
  - Peripheral swelling [Unknown]
  - Insomnia [Unknown]
  - Extrasystoles [Unknown]
  - Ventricular extrasystoles [Unknown]
  - Dysstasia [Unknown]
  - Malaise [Unknown]
  - Asthenia [Unknown]
  - Weight increased [Unknown]
  - Muscle spasms [Unknown]
  - Ejection fraction decreased [Unknown]
